FAERS Safety Report 18665650 (Version 1)
Quarter: 2020Q4

REPORT INFORMATION
  Report Type: Spontaneous
  Country: BR (occurrence: BR)
  Receive Date: 20201226
  Receipt Date: 20201226
  Transmission Date: 20210114
  Serious: No
  Sender: FDA-Public Use
  Company Number: BR-LUPIN PHARMACEUTICALS INC.-2020-09253

PATIENT
  Age: 25 Year
  Sex: Female

DRUGS (3)
  1. THIAMINE. [Suspect]
     Active Substance: THIAMINE
     Dosage: 100 MILLIGRAM
     Route: 048
  2. THIAMINE. [Suspect]
     Active Substance: THIAMINE
     Indication: WERNICKE^S ENCEPHALOPATHY
     Dosage: 500 MILLIGRAM, TID (AS LOADING DOSE) EVERY 8 HOUR
     Route: 042
  3. POTASSIUM [Suspect]
     Active Substance: POTASSIUM
     Indication: WERNICKE^S ENCEPHALOPATHY
     Dosage: UNK
     Route: 048

REACTIONS (1)
  - Exposure during pregnancy [Unknown]
